FAERS Safety Report 6393660-X (Version None)
Quarter: 2009Q4

REPORT INFORMATION
  Report Type: 
  Country: None (occurrence: None)
  Receive Date: 20091008
  Receipt Date: 20090930
  Transmission Date: 20100525
  Serious: Yes (Hospitalization)
  Sender: FDA-Public Use
  Company Number: US-JNJFOC-20091000833

PATIENT
  Sex: Female

DRUGS (3)
  1. RISPERDAL CONSTA [Suspect]
     Indication: SCHIZOPHRENIA
     Route: 030
  2. ANTIBIOTIC NOS [Concomitant]
     Indication: NEPHROLITHIASIS
     Route: 065
  3. FLAGYL [Concomitant]
     Indication: CLOSTRIDIAL INFECTION
     Route: 065

REACTIONS (2)
  - DIARRHOEA [None]
  - NEPHROLITHIASIS [None]
